FAERS Safety Report 4540152-6 (Version None)
Quarter: 2004Q4

REPORT INFORMATION
  Report Type: 
  Country: None (occurrence: None)
  Receive Date: 20041222
  Receipt Date: 20041203
  Transmission Date: 20050328
  Serious: Yes (Life-Threatening)
  Sender: FDA-Public Use
  Company Number: GBS041216099

PATIENT
  Age: 23 Year
  Sex: Male

DRUGS (3)
  1. OLANZAPINE [Suspect]
     Indication: SCHIZOPHRENIA
     Dosage: 10 MG
     Dates: start: 20041102, end: 20041122
  2. HALOPERIDOL [Concomitant]
  3. LORAZEPAM [Concomitant]

REACTIONS (1)
  - NEUTROPHIL COUNT DECREASED [None]
